FAERS Safety Report 4599743-9 (Version None)
Quarter: 2005Q1

REPORT INFORMATION
  Report Type: 
  Country: None (occurrence: None)
  Receive Date: 20050307
  Receipt Date: 20050221
  Transmission Date: 20050727
  Serious: Yes (Hospitalization)
  Sender: FDA-Public Use
  Company Number: JP-SOLVAY-00205000643

PATIENT
  Age: 25031 Day
  Sex: Female
  Weight: 62 kg

DRUGS (9)
  1. MYONAL [Concomitant]
     Indication: ILL-DEFINED DISORDER
     Dosage: DAILY DOSE:  UNKNOWN
     Route: 048
  2. COVERSYL [Suspect]
     Indication: HYPERTENSION
     Dosage: DAILY DOSE: 4 MILLIGRAM(S)
     Route: 048
  3. HERBESSER [Suspect]
     Indication: HYPERTENSION
     Dosage: DAILY DOSE: 60 MILLIGRAM(S)
     Route: 048
  4. GASMOTIN [Concomitant]
     Indication: ILL-DEFINED DISORDER
     Dosage: DAILY DOSE:  UNKNOWN
     Route: 065
  5. MM [Concomitant]
     Indication: ILL-DEFINED DISORDER
     Dosage: DAILY DOSE:  UNKNOWN
     Route: 065
  6. SOLETON [Suspect]
     Indication: SPINAL DISORDER
     Dosage: DAILY DOSE: 240 MILLIGRAM(S)
     Route: 048
  7. DEPAS [Concomitant]
     Indication: ILL-DEFINED DISORDER
     Dosage: DAILY DOSE:  UNKNOWN
     Route: 065
  8. HALCION [Concomitant]
     Indication: ILL-DEFINED DISORDER
     Dosage: DAILY DOSE:  UNKNOWN
     Route: 065
  9. GASNYNE [Concomitant]
     Indication: ILL-DEFINED DISORDER
     Dosage: DAILY DOSE:  UNKNOWN
     Route: 065

REACTIONS (2)
  - COLONIC HAEMORRHAGE [None]
  - DIVERTICULUM INTESTINAL [None]
